FAERS Safety Report 13741973 (Version 1)
Quarter: 2017Q3

REPORT INFORMATION
  Report Type: Spontaneous
  Country: FR (occurrence: FR)
  Receive Date: 20170711
  Receipt Date: 20170711
  Transmission Date: 20171127
  Serious: Yes (Hospitalization)
  Sender: FDA-Public Use
  Company Number: FR-SUPERNUS PHARMACEUTICALS, INC.-2017SUP00169

PATIENT
  Age: 52 Year
  Sex: Female

DRUGS (2)
  1. TOPIRAMATE. [Suspect]
     Active Substance: TOPIRAMATE
     Indication: MIGRAINE PROPHYLAXIS
     Dosage: UNK
     Route: 065
     Dates: start: 2011
  2. TOPIRAMATE. [Suspect]
     Active Substance: TOPIRAMATE
     Dosage: 50 MG, 1X/DAY
     Route: 065
     Dates: start: 2015

REACTIONS (1)
  - Benign familial pemphigus [Recovering/Resolving]
